FAERS Safety Report 18419832 (Version 1)
Quarter: 2020Q4

REPORT INFORMATION
  Report Type: Spontaneous
  Country: AT (occurrence: AT)
  Receive Date: 20201023
  Receipt Date: 20201023
  Transmission Date: 20210114
  Serious: Yes (Other)
  Sender: FDA-Public Use
  Company Number: AT-PFIZER INC-2020408588

PATIENT
  Age: 40 Year
  Sex: Female

DRUGS (1)
  1. TALZENNA [Suspect]
     Active Substance: TALAZOPARIB TOSYLATE
     Indication: BREAST CANCER
     Dosage: UNK, CYCLIC (5 CYCLES)
     Dates: end: 202009

REACTIONS (4)
  - Pancytopenia [Unknown]
  - Neoplasm progression [Unknown]
  - Anaemia [Not Recovered/Not Resolved]
  - Bone marrow infiltration [Unknown]
